FAERS Safety Report 13279748 (Version 1)
Quarter: 2017Q1

REPORT INFORMATION
  Report Type: Spontaneous
  Country: US (occurrence: US)
  Receive Date: 20170228
  Receipt Date: 20170228
  Transmission Date: 20170428
  Serious: Yes (Other)
  Sender: FDA-Public Use
  Company Number: None

PATIENT
  Age: 10 Year
  Sex: Female
  Weight: 29.25 kg

DRUGS (4)
  1. LEXAPRO [Concomitant]
     Active Substance: ESCITALOPRAM OXALATE
  2. PRO-BIOTICS [Concomitant]
  3. MIRALAX [Suspect]
     Active Substance: POLYETHYLENE GLYCOL 3350
     Indication: CONSTIPATION
     Dosage: ?          QUANTITY:17 G;OTHER ROUTE:ORALLY?
     Route: 048
     Dates: start: 20110211, end: 20110604
  4. JUICE PLUS VITAMINS [Concomitant]

REACTIONS (5)
  - Attention deficit/hyperactivity disorder [None]
  - Obsessive-compulsive disorder [None]
  - Anxiety [None]
  - Sensory processing disorder [None]
  - Product use issue [None]

NARRATIVE: CASE EVENT DATE: 20110211
